FAERS Safety Report 13451989 (Version 2)
Quarter: 2017Q2

REPORT INFORMATION
  Report Type: Spontaneous
  Country: US (occurrence: US)
  Receive Date: 20170418
  Receipt Date: 20170627
  Transmission Date: 20170830
  Serious: Yes (Other)
  Sender: FDA-Public Use
  Company Number: US-BEH-2017079568

PATIENT
  Age: 44 Year
  Sex: Female
  Weight: 56.69 kg

DRUGS (7)
  1. DESOGEN                            /00197402/ [Concomitant]
     Indication: HORMONE REPLACEMENT THERAPY
     Route: 048
  2. VITAMIN D3 [Concomitant]
     Active Substance: CHOLECALCIFEROL
  3. COLESTID [Concomitant]
     Active Substance: COLESTIPOL HYDROCHLORIDE
  4. CALCIUM [Concomitant]
     Active Substance: CALCIUM
  5. PREDNISONE. [Concomitant]
     Active Substance: PREDNISONE
     Indication: COLITIS ULCERATIVE
  6. HIZENTRA [Suspect]
     Active Substance: HUMAN IMMUNOGLOBULIN G
     Indication: IMMUNODEFICIENCY
     Dosage: 10 G, Q3W
     Route: 065
     Dates: start: 201211
  7. NEXIUM [Concomitant]
     Active Substance: ESOMEPRAZOLE MAGNESIUM

REACTIONS (4)
  - Peripheral swelling [Recovering/Resolving]
  - Pain in extremity [Recovering/Resolving]
  - Deep vein thrombosis [Recovering/Resolving]
  - Feeling hot [Recovering/Resolving]

NARRATIVE: CASE EVENT DATE: 20170314
